FAERS Safety Report 7343515-9 (Version None)
Quarter: 2011Q1

REPORT INFORMATION
  Report Type: 
  Country: None (occurrence: None)
  Receive Date: 20110310
  Receipt Date: 20100316
  Transmission Date: 20110831
  Serious: No
  Sender: FDA-Public Use
  Company Number: A0850411A

PATIENT
  Age: 61 Year
  Sex: Female

DRUGS (1)
  1. NICOTINE POLACRILEX [Suspect]

REACTIONS (3)
  - DRUG ADMINISTRATION ERROR [None]
  - MALAISE [None]
  - PSYCHOMOTOR HYPERACTIVITY [None]
